FAERS Safety Report 9709750 (Version 1)
Quarter: 2013Q4

REPORT INFORMATION
  Report Type: Spontaneous
  Country: BR (occurrence: BR)
  Receive Date: 20131126
  Receipt Date: 20131126
  Transmission Date: 20140711
  Serious: Yes (Hospitalization)
  Sender: FDA-Public Use
  Company Number: BR-ASTRAZENECA-2013SE86036

PATIENT
  Age: 674 Month
  Sex: Male
  Weight: 83 kg

DRUGS (5)
  1. CRESTOR [Suspect]
     Indication: BLOOD CHOLESTEROL INCREASED
     Route: 048
     Dates: start: 201309
  2. INSULIN [Concomitant]
     Indication: DIABETES MELLITUS
     Route: 058
     Dates: start: 2009
  3. INSULIN [Concomitant]
     Indication: DIABETES MELLITUS
     Dosage: NPH, 28 IU AT NIGHT
     Route: 058
     Dates: start: 2009
  4. INSULIN [Concomitant]
     Indication: DIABETES MELLITUS
     Dosage: RAPID INSULIN, AS PER NEEDED.
     Route: 058
     Dates: start: 2009
  5. METFORMIN [Concomitant]
     Indication: DIABETES MELLITUS
     Dosage: 150 MG, DAILY.
     Route: 048

REACTIONS (1)
  - Coronary artery disease [Recovered/Resolved]
